FAERS Safety Report 9825600 (Version 1)
Quarter: 2013Q4

REPORT INFORMATION
  Report Type: Spontaneous
  Country: US (occurrence: None)
  Receive Date: 20131101
  Receipt Date: 20131101
  Transmission Date: 20140711
  Serious: Yes (Hospitalization)
  Sender: FDA-Public Use
  Company Number: 2013GMK005551

PATIENT
  Age: 64 Year
  Sex: Female
  Weight: 55 kg

DRUGS (8)
  1. CARVEDILOL [Suspect]
     Indication: PRODUCT USED FOR UNKNOWN INDICATION
     Dosage: 12.5 MG, BID, ORAL
     Route: 048
  2. DALTEPARIN (DALTEPARIN) [Concomitant]
  3. WARFARIN SODIUM (WARFARIN SODIUM) [Concomitant]
  4. WARFARIN SODIUM (WARFARIN SODIUM) [Concomitant]
  5. HYDROCHLOROTHIAZIDE W/TRIAMTERENE (HYDROCHLOROTHIAZIDE, TRIAMTERENE) TABLET, [Concomitant]
  6. FERROUS SULFATE (FERROUS SULFATE) [Concomitant]
  7. DOCUSATE SODIUM (DOCUSATE SODIUM) [Concomitant]
  8. ARGATROBAN (ARGATROBAN) [Concomitant]

REACTIONS (1)
  - Thrombocytopenia [None]
